FAERS Safety Report 6571890-1 (Version None)
Quarter: 2010Q1

REPORT INFORMATION
  Report Type: 
  Country: None (occurrence: None)
  Receive Date: 20100205
  Receipt Date: 20100129
  Transmission Date: 20100710
  Serious: Yes (Hospitalization)
  Sender: FDA-Public Use
  Company Number: US-BRISTOL-MYERS SQUIBB COMPANY-14955835

PATIENT
  Age: 65 Year
  Sex: Female
  Weight: 44 kg

DRUGS (1)
  1. DASATINIB [Suspect]
     Indication: SALIVARY GLAND CANCER
     Dosage: LAST DOSE ON 12JAN10 DOSE DELAYED FOR 7 DAYS TOTAL DOSE ADMINISTERED IN THIS COURSE= 1960 MG
     Route: 048
     Dates: start: 20091124

REACTIONS (3)
  - BLOOD GLUCOSE INCREASED [None]
  - DECREASED APPETITE [None]
  - DYSPNOEA [None]
